FAERS Safety Report 5792872-3 (Version None)
Quarter: 2008Q2

REPORT INFORMATION
  Report Type: 
  Country: None (occurrence: None)
  Receive Date: 20080624
  Receipt Date: 20080609
  Transmission Date: 20081010
  Serious: Yes (Disabling, Other)
  Sender: FDA-Public Use
  Company Number: 2008S1007231

PATIENT
  Age: 13 Year
  Sex: Female

DRUGS (7)
  1. OXYBUTYNIN CHLORIDE [Suspect]
     Indication: AUTOMATIC BLADDER
     Dosage: 5 MG; DAILY; ORAL
     Route: 048
     Dates: start: 20071001, end: 20080422
  2. OXYBUTYNIN CHLORIDE [Suspect]
     Indication: POLLAKIURIA
     Dosage: 5 MG; DAILY; ORAL
     Route: 048
     Dates: start: 20071001, end: 20080422
  3. OXYBUTYNIN CHLORIDE [Suspect]
     Indication: URINARY INCONTINENCE
     Dosage: 5 MG; DAILY; ORAL
     Route: 048
     Dates: start: 20071001, end: 20080422
  4. MELATONIN (CON.) [Concomitant]
  5. MULTIVITAMIN/ 00097801/ (CON.) [Concomitant]
  6. CALCIUM (CON.) [Concomitant]
  7. FISH OIL (CON.) [Concomitant]

REACTIONS (5)
  - ABDOMINAL PAIN [None]
  - ANXIETY [None]
  - CONSTIPATION [None]
  - CRYING [None]
  - EDUCATIONAL PROBLEM [None]
